FAERS Safety Report 26001748 (Version 1)
Quarter: 2025Q4

REPORT INFORMATION
  Report Type: Spontaneous
  Country: US (occurrence: None)
  Receive Date: 20251105
  Receipt Date: 20251105
  Transmission Date: 20260117
  Serious: Yes (Life-Threatening)
  Sender: FDA-CTU
  Company Number: None

PATIENT
  Age: 65 Year
  Sex: Male
  Weight: 124.74 kg

DRUGS (2)
  1. VANCOMYCIN [Suspect]
     Active Substance: VANCOMYCIN
     Indication: Abscess limb
     Dosage: 2 GM ONCE INTRAVENOUS DRIP ?
     Route: 042
  2. Ceftriaxone 2G [Concomitant]

REACTIONS (4)
  - Pulmonary embolism [None]
  - Cardiac arrest [None]
  - Blood albumin decreased [None]
  - Electrocardiogram ST segment depression [None]

NARRATIVE: CASE EVENT DATE: 20251104
